FAERS Safety Report 7711705-9 (Version None)
Quarter: 2011Q3

REPORT INFORMATION
  Report Type: 
  Country: None (occurrence: None)
  Receive Date: 20110826
  Receipt Date: 20110815
  Transmission Date: 20111222
  Serious: No
  Sender: FDA-Public Use
  Company Number: US-B.I. PHARMACEUTICALS,INC./RIDGEFIELD-2011-BP-17759BP

PATIENT
  Sex: Male

DRUGS (23)
  1. CELEBREX [Concomitant]
     Dosage: 200 MG
  2. OMEPRAZOLE [Concomitant]
     Dosage: 20 MG
  3. BENEFIBER ULTRA [Concomitant]
  4. PRADAXA [Suspect]
     Indication: ATRIAL FIBRILLATION
     Dosage: 300 MG
     Route: 048
     Dates: start: 20110609, end: 20110628
  5. ASPIRIN [Concomitant]
     Indication: PROPHYLAXIS
     Dosage: 81 MG
  6. PROSOM [Concomitant]
  7. PROPAFENONE HCL [Concomitant]
     Indication: ATRIAL FIBRILLATION
     Dates: start: 20110303
  8. GARLIC [Concomitant]
     Dosage: 2000 MG
  9. SIMAVASTATIN [Concomitant]
  10. TRAMADOL HCL [Concomitant]
  11. FLEXAMIN TRIPLE ST [Concomitant]
  12. LOVAZA [Concomitant]
     Dosage: 4000 MG
  13. LOPRESSOR [Concomitant]
     Indication: ATRIAL FIBRILLATION
     Dates: start: 20110609
  14. MATURE MULTI VITAMIN [Concomitant]
  15. ATENOLOL [Concomitant]
     Indication: ATRIAL FIBRILLATION
     Dosage: 25 MG
     Dates: start: 20110625
  16. KLOR-CON [Concomitant]
     Dosage: 20 MEQ
  17. SINGULAIR [Concomitant]
     Dosage: 10 MG
  18. RED YEAST RICE [Concomitant]
     Dosage: 2400 MG
  19. PRADAXA [Suspect]
     Indication: ANTICOAGULANT THERAPY
     Dosage: 300 MG
     Route: 048
     Dates: start: 20110704, end: 20110708
  20. BUSPAR HCL [Concomitant]
     Dosage: 20 MG
  21. MAXZIDE [Concomitant]
  22. ALBUTEROL SULFATE AUTOHALER [Concomitant]
  23. WARFARIN SODIUM [Concomitant]
     Dosage: 5 MG

REACTIONS (2)
  - DIARRHOEA [None]
  - WEIGHT DECREASED [None]
